FAERS Safety Report 21972108 (Version 3)
Quarter: 2023Q1

REPORT INFORMATION
  Report Type: Spontaneous
  Country: JP (occurrence: JP)
  Receive Date: 20230209
  Receipt Date: 20230310
  Transmission Date: 20230418
  Serious: Yes (Death, Hospitalization)
  Sender: FDA-Public Use
  Company Number: JP-AMGEN-JPNSP2023021566

PATIENT
  Age: 83 Year
  Sex: Male

DRUGS (1)
  1. EVENITY [Suspect]
     Active Substance: ROMOSOZUMAB-AQQG
     Indication: Osteoporosis
     Dosage: 210 MILLIGRAM
     Route: 058
     Dates: end: 20221222

REACTIONS (1)
  - Chest pain [Fatal]

NARRATIVE: CASE EVENT DATE: 20230112
